FAERS Safety Report 16827541 (Version 1)
Quarter: 2019Q3

REPORT INFORMATION
  Report Type: Report from Study
  Country: JP (occurrence: JP)
  Receive Date: 20190919
  Receipt Date: 20190919
  Transmission Date: 20191005
  Serious: Yes (Death)
  Sender: FDA-Public Use
  Company Number: JP-JT-EVA201901533KERYXP-001

PATIENT
  Age: 82 Year
  Sex: Female

DRUGS (16)
  1. TELMISARTAN. [Concomitant]
     Active Substance: TELMISARTAN
     Dosage: 40 MILLIGRAM, QD
     Route: 048
  2. NESP [Concomitant]
     Active Substance: DARBEPOETIN ALFA
     Indication: NEPHROGENIC ANAEMIA
     Dosage: 120 MICROGRAM, QMO; 3 DOSES IN 3 MONTHS
     Route: 065
  3. MICARDIS [Concomitant]
     Active Substance: TELMISARTAN
     Dosage: 40 MILLIGRAM, QD
     Route: 048
  4. FEBURIC [Concomitant]
     Active Substance: FEBUXOSTAT
     Dosage: 30 MILLIGRAM, QD
     Route: 048
  5. KAYEXALATE [Concomitant]
     Active Substance: SODIUM POLYSTYRENE SULFONATE
     Indication: NEPHROSCLEROSIS
     Dosage: 9.81 GRAM, QD
     Route: 048
  6. NESP [Concomitant]
     Active Substance: DARBEPOETIN ALFA
     Dosage: 60 MICROGRAM, 2 DOSES IN 3 MONTHS
     Route: 065
  7. NESP [Concomitant]
     Active Substance: DARBEPOETIN ALFA
     Dosage: 180 MICROGRAM, 2 DOSES IN 12 MONTHS
     Route: 065
  8. LANSOPRAZOLE. [Concomitant]
     Active Substance: LANSOPRAZOLE
     Indication: HYPERCHLORHYDRIA
     Dosage: 15 MILLIGRAM, QD
     Route: 048
  9. AMLODIPINE                         /00972402/ [Concomitant]
     Active Substance: AMLODIPINE BESYLATE
     Dosage: 10 MILLIGRAM, QD
     Route: 048
  10. FUROSEMIDE. [Concomitant]
     Active Substance: FUROSEMIDE
     Dosage: 60 MILLIGRAM, QD
     Route: 048
  11. JUSO [Concomitant]
     Active Substance: SODIUM BICARBONATE
     Dosage: 7500 MILLIGRAM, QD
     Route: 048
  12. RIONA [Suspect]
     Active Substance: FERRIC CITRATE ANHYDROUS
     Indication: HYPERPHOSPHATAEMIA
     Dosage: 4500 MILLIGRAM, QD
     Route: 048
     Dates: start: 20161101, end: 20180812
  13. NESP [Concomitant]
     Active Substance: DARBEPOETIN ALFA
     Dosage: 120 MICROGRAM, 3 DOSES IN 6 MONTHS
     Route: 065
  14. ATORVASTATIN                       /01326102/ [Concomitant]
     Active Substance: ATORVASTATIN
     Dosage: 10 MILLIGRAM, QD
     Route: 048
  15. BAYASPIRIN [Concomitant]
     Active Substance: ASPIRIN
     Dosage: 100 MILLIGRAM, QD
     Route: 048
  16. CILOSTAZOL. [Concomitant]
     Active Substance: CILOSTAZOL
     Dosage: 400 MILLIGRAM, QD
     Route: 048

REACTIONS (1)
  - Nephrosclerosis [Fatal]

NARRATIVE: CASE EVENT DATE: 20180821
